FAERS Safety Report 21838914 (Version 1)
Quarter: 2023Q1

REPORT INFORMATION
  Report Type: Report from Study
  Country: ES (occurrence: None)
  Receive Date: 20230109
  Receipt Date: 20230109
  Transmission Date: 20230418
  Serious: Yes (Other)
  Sender: FDA-Public Use
  Company Number: 2023A002225

PATIENT
  Age: 68 Year
  Sex: Female

DRUGS (1)
  1. ACALABRUTINIB [Suspect]
     Active Substance: ACALABRUTINIB
     Route: 048
     Dates: start: 202111, end: 202207

REACTIONS (2)
  - Toxicity to various agents [Unknown]
  - Drug tolerance [Unknown]
